FAERS Safety Report 6442228-5 (Version None)
Quarter: 2009Q4

REPORT INFORMATION
  Report Type: 
  Country: None (occurrence: None)
  Receive Date: 20091116
  Receipt Date: 20091106
  Transmission Date: 20100525
  Serious: Yes (Other)
  Sender: FDA-Public Use
  Company Number: US-AMGEN-QUU368867

PATIENT
  Sex: Female
  Weight: 74.5 kg

DRUGS (3)
  1. ENBREL [Suspect]
     Indication: RHEUMATOID ARTHRITIS
     Route: 058
     Dates: start: 20071212
  2. METHOTREXATE [Concomitant]
  3. ADVIL [Concomitant]

REACTIONS (7)
  - ADVERSE DRUG REACTION [None]
  - ARTHRALGIA [None]
  - HYPOTHYROIDISM [None]
  - JOINT STIFFNESS [None]
  - JOINT SWELLING [None]
  - MACULAR DEGENERATION [None]
  - RHEUMATOID ARTHRITIS [None]
